FAERS Safety Report 5218355-7 (Version None)
Quarter: 2007Q1

REPORT INFORMATION
  Report Type: 
  Country: None (occurrence: None)
  Receive Date: 20070123
  Receipt Date: 20070123
  Transmission Date: 20070707
  Serious: Yes (Hospitalization)
  Sender: FDA-Public Use
  Company Number: None

PATIENT
  Age: 24 Year
  Sex: Female
  Weight: 88.4514 kg

DRUGS (4)
  1. HYDROXYPROGESTERONE CAPROATE [Suspect]
     Indication: PREMATURE BABY
     Dosage: 250 MG 1X PER WEEK, IM
     Route: 030
     Dates: start: 20060816, end: 20061102
  2. MOTRIN [Concomitant]
  3. NIFEDIPINE [Concomitant]
  4. VITAMIN AND MINERAL PRENATAL SUPPLEMENT W/ FOLIC ACID CAP [Concomitant]

REACTIONS (2)
  - PREMATURE LABOUR [None]
  - TOCOLYSIS [None]
